FAERS Safety Report 23570777 (Version 2)
Quarter: 2024Q1

REPORT INFORMATION
  Report Type: Spontaneous
  Country: FR (occurrence: FR)
  Receive Date: 20240227
  Receipt Date: 20240311
  Transmission Date: 20240409
  Serious: Yes (Hospitalization, Other)
  Sender: FDA-Public Use
  Company Number: None

PATIENT
  Age: 73 Year
  Sex: Female
  Weight: 61 kg

DRUGS (14)
  1. CERNEVIT [Suspect]
     Active Substance: VITAMINS
     Indication: Nutritional supplementation
     Dosage: 5 ML ONCE A DAY
     Route: 042
     Dates: start: 20240118
  2. OLIMEL E [Suspect]
     Active Substance: AMINO ACIDS\DEXTROSE\ELECTROLYTES NOS\SOYBEAN OIL
     Indication: Parenteral nutrition
     Dosage: 1000 ML ONCE A DAY (ROUTE OF ADMINISTRATION: PARENTERAL)
     Route: 050
     Dates: start: 20240118, end: 20240131
  3. ACETAMINOPHEN [Suspect]
     Active Substance: ACETAMINOPHEN
     Indication: Pain
     Dosage: 4 G (GRAMS) ONCE A DAY
     Route: 042
     Dates: start: 20240115
  4. DIETARY SUPPLEMENT [Suspect]
     Active Substance: DIETARY SUPPLEMENT
     Indication: Nutritional supplementation
     Dosage: (SOLUTION TO BE DILUTED FOR PERFUSION) 10 ML ONCE A DAY
     Route: 042
     Dates: start: 20240118
  5. ONDANSETRON [Suspect]
     Active Substance: ONDANSETRON
     Indication: Nausea
     Dosage: 24 MG ONCE A DAY
     Route: 042
     Dates: start: 20240115
  6. MIDAZOLAM [Suspect]
     Active Substance: MIDAZOLAM
     Indication: Anxiety
     Dosage: 12 MG ONCE A DAY
     Route: 042
     Dates: start: 20240127
  7. HYDROCHLOROTHIAZIDE [Suspect]
     Active Substance: HYDROCHLOROTHIAZIDE
     Indication: Hypertension
     Dosage: 12.5 MG ONCE A DAY
     Route: 048
  8. TELMISARTAN [Suspect]
     Active Substance: TELMISARTAN
     Indication: Hypertension
     Dosage: 80 MG ONCE A DAY
     Route: 048
  9. METOCLOPRAMIDE [Suspect]
     Active Substance: METOCLOPRAMIDE
     Indication: Nausea
     Dosage: 10 MG AS NECESSARY
     Route: 042
     Dates: start: 20240127
  10. SODIUM CHLORIDE [Suspect]
     Active Substance: SODIUM CHLORIDE
     Indication: Fluid replacement
     Dosage: (SODIUM CHLORIDE LAVOISIER 0.9%, SOLUTION INJECTABLE), 500 ML ONCE A DAY, (ROUTE OF ADMINISTRATION:
     Route: 050
     Dates: start: 20240118
  11. SIMVASTATIN [Suspect]
     Active Substance: SIMVASTATIN
     Indication: Dyslipidaemia
     Dosage: 20 MG ONCE A DAY
     Route: 048
  12. ESOMEPRAZOLE [Suspect]
     Active Substance: ESOMEPRAZOLE
     Indication: Prophylaxis against gastrointestinal ulcer
     Dosage: (40 MG, POWDER FOR SOLUTION INJECTABLE OR FOR PERFUSION) 40 MG ONCE A DAY
     Route: 042
     Dates: start: 20240122
  13. OCTREOTIDE ACETATE [Suspect]
     Active Substance: OCTREOTIDE ACETATE
     Indication: Intestinal obstruction
     Dosage: 60 UG ONCE A DAY
     Route: 042
     Dates: start: 20240126
  14. CHROMIC CHLORIDE\CUPROUS CHLORIDE\FERRIC CHLORIDE\MANGANESE CHLORIDE\P [Suspect]
     Active Substance: CHROMIC CHLORIDE\CUPROUS CHLORIDE\FERRIC CHLORIDE\MANGANESE CHLORIDE\POTASSIUM IODIDE\SODIUM FLUORID
     Indication: Nutritional supplementation
     Dosage: (SOLUTION TO BE DILUTED FOR PERFUSION) 10 ML ONCE A DAY
     Route: 042
     Dates: start: 20240118

REACTIONS (1)
  - Thrombocytopenia [Recovering/Resolving]

NARRATIVE: CASE EVENT DATE: 20240129
